FAERS Safety Report 10697232 (Version 3)
Quarter: 2015Q1

REPORT INFORMATION
  Report Type: Spontaneous
  Country: US (occurrence: US)
  Receive Date: 20150108
  Receipt Date: 20150310
  Transmission Date: 20150721
  Serious: Yes (Death, Hospitalization, Disabling, Other)
  Sender: FDA-Public Use
  Company Number: US-009507513-1501USA000222

PATIENT
  Age: 41 Year
  Sex: Female
  Weight: 57.14 kg

DRUGS (3)
  1. TEMOZOLOMIDE. [Suspect]
     Active Substance: TEMOZOLOMIDE
     Dosage: 150-200 MILLIGRAM / SQUARE METER FOR 5 DAYS EVERY 28 DAYS
     Route: 048
  2. FERUMOXYTOL [Concomitant]
     Active Substance: FERUMOXYTOL
  3. TEMOZOLOMIDE. [Suspect]
     Active Substance: TEMOZOLOMIDE
     Indication: GLIOBLASTOMA MULTIFORME
     Dosage: 75 MILLIGRAM / SQUARE METER  (120 MG) DAILY FOR 6 WEEKS
     Route: 048
     Dates: end: 201106

REACTIONS (5)
  - Adverse event [Fatal]
  - Lymphopenia [Fatal]
  - Herpes zoster [Fatal]
  - Bronchopulmonary aspergillosis [Fatal]
  - Pneumocystis jirovecii pneumonia [Fatal]

NARRATIVE: CASE EVENT DATE: 201109
